FAERS Safety Report 16302985 (Version 1)
Quarter: 2019Q2

REPORT INFORMATION
  Report Type: Spontaneous
  Country: US (occurrence: US)
  Receive Date: 20190513
  Receipt Date: 20190513
  Transmission Date: 20190711
  Serious: No
  Sender: FDA-Public Use
  Company Number: US-SHIRE-US201915475

PATIENT
  Sex: Female

DRUGS (1)
  1. XIIDRA [Suspect]
     Active Substance: LIFITEGRAST
     Indication: DRY EYE
     Dosage: 1 GTT DROPS IN EACH EYE, 2X/DAY:BID
     Route: 047
     Dates: start: 20190507

REACTIONS (3)
  - Instillation site lacrimation [Unknown]
  - Inability to afford medication [Unknown]
  - Product container issue [Unknown]
